FAERS Safety Report 15733267 (Version 2)
Quarter: 2019Q1

REPORT INFORMATION
  Report Type: Spontaneous
  Country: US (occurrence: US)
  Receive Date: 20181218
  Receipt Date: 20190104
  Transmission Date: 20190417
  Serious: No
  Sender: FDA-Public Use
  Company Number: US-UNITED THERAPEUTICS-UNT-2018-020777

PATIENT
  Sex: Female
  Weight: 110.2 kg

DRUGS (1)
  1. REMODULIN [Suspect]
     Active Substance: TREPROSTINIL
     Indication: PULMONARY ARTERIAL HYPERTENSION
     Dosage: 0.019 ?G/KG, CONTINUING
     Route: 058
     Dates: start: 20180710

REACTIONS (5)
  - Infusion site haemorrhage [Unknown]
  - Infusion site erythema [Unknown]
  - Pain [Unknown]
  - Infusion site pain [Unknown]
  - Infusion site swelling [Unknown]

NARRATIVE: CASE EVENT DATE: 2018
